FAERS Safety Report 12461375 (Version 2)
Quarter: 2016Q3

REPORT INFORMATION
  Report Type: Report from Study
  Country: US (occurrence: US)
  Receive Date: 20160613
  Receipt Date: 20160805
  Transmission Date: 20161109
  Serious: Yes (Hospitalization)
  Sender: FDA-Public Use
  Company Number: US-SA-2016SA059449

PATIENT
  Age: 37 Year
  Sex: Female

DRUGS (2)
  1. LEMTRADA [Suspect]
     Active Substance: ALEMTUZUMAB
     Indication: MULTIPLE SCLEROSIS
     Dosage: SCHEDULED TO BE GIVEN DAILY TIMES FIVE DAYS
     Route: 041
     Dates: start: 20160317, end: 20160320
  2. LEMTRADA [Suspect]
     Active Substance: ALEMTUZUMAB
     Indication: MULTIPLE SCLEROSIS
     Dosage: SCHEDULED TO BE GIVEN DAILY TIMES FIVE DAYS
     Route: 041
     Dates: start: 20160322, end: 20160322

REACTIONS (14)
  - Abdominal pain lower [Recovering/Resolving]
  - Electrolyte imbalance [Recovered/Resolved]
  - Blister [Recovered/Resolved]
  - Chest discomfort [Not Recovered/Not Resolved]
  - Insomnia [Not Recovered/Not Resolved]
  - Contusion [Not Recovered/Not Resolved]
  - Body temperature increased [Recovered/Resolved]
  - Back pain [Recovered/Resolved]
  - Arthralgia [Not Recovered/Not Resolved]
  - Discomfort [Not Recovered/Not Resolved]
  - Urinary tract infection [Recovering/Resolving]
  - Sepsis [Recovered/Resolved]
  - Rash generalised [Recovered/Resolved]
  - Cough [Not Recovered/Not Resolved]

NARRATIVE: CASE EVENT DATE: 2016
